FAERS Safety Report 18894431 (Version 3)
Quarter: 2022Q2

REPORT INFORMATION
  Report Type: Spontaneous
  Country: US (occurrence: US)
  Receive Date: 20210215
  Receipt Date: 20220426
  Transmission Date: 20220721
  Serious: Yes (Other)
  Sender: FDA-Public Use
  Company Number: NVSC2020US335499

PATIENT
  Sex: Female
  Weight: 56 kg

DRUGS (1)
  1. KYMRIAH [Suspect]
     Active Substance: TISAGENLECLEUCEL
     Indication: Acute lymphocytic leukaemia
     Dosage: 19 ML (1.9 X10E6)/(1.7 X 10E8)  ONCE/SINGLE (INTRAVENOUS- INTO BLOODSTREAM VIA VEIN)
     Route: 042

REACTIONS (1)
  - B-lymphocyte count abnormal [Recovered/Resolved]
